FAERS Safety Report 8856870 (Version 1)
Quarter: 2012Q4

REPORT INFORMATION
  Report Type: Spontaneous
  Country: US (occurrence: None)
  Receive Date: 20121019
  Receipt Date: 20121019
  Transmission Date: 20130627
  Serious: Yes (Other)
  Sender: FDA-Public Use
  Company Number: 2012MA012239

PATIENT
  Age: 42 Year
  Sex: Female

DRUGS (3)
  1. CITALOPRAM HYDROBROMIDE TABLETS, 40 MG (PUREPAC) [Suspect]
     Indication: DEPRESSIVE DISORDER
  2. QUETIAPINE [Concomitant]
  3. ADDERALL [Concomitant]

REACTIONS (8)
  - Clonus [None]
  - Head titubation [None]
  - General physical health deterioration [None]
  - Agitation [None]
  - Restlessness [None]
  - Blood pressure fluctuation [None]
  - Muscle rigidity [None]
  - Eye movement disorder [None]
